FAERS Safety Report 4611493-9 (Version None)
Quarter: 2005Q1

REPORT INFORMATION
  Report Type: 
  Country: None (occurrence: None)
  Receive Date: 20050315
  Receipt Date: 20050315
  Transmission Date: 20050727
  Serious: Yes (Life-Threatening, Disabling)
  Sender: FDA-Public Use
  Company Number: None

PATIENT
  Age: 68 Year
  Sex: Male
  Weight: 63.5036 kg

DRUGS (5)
  1. PACERONE [Suspect]
     Dosage: 100MG    DAY
     Dates: start: 20041101, end: 20050115
  2. DEMADEX [Concomitant]
  3. LANOXIN [Concomitant]
  4. POTASSIUM CHLORIDE [Concomitant]
  5. AMARYL [Concomitant]

REACTIONS (6)
  - ASTHENIA [None]
  - BLOOD GLUCOSE ABNORMAL [None]
  - BLOOD POTASSIUM ABNORMAL [None]
  - CONFUSIONAL STATE [None]
  - IMPAIRED WORK ABILITY [None]
  - OFF LABEL USE [None]
